FAERS Safety Report 7513719-0 (Version None)
Quarter: 2011Q2

REPORT INFORMATION
  Report Type: 
  Country: None (occurrence: None)
  Receive Date: 20110531
  Receipt Date: 20110527
  Transmission Date: 20111010
  Serious: Yes (Life-Threatening)
  Sender: FDA-Public Use
  Company Number: PHHY2011GB45675

PATIENT
  Age: 81 Year
  Sex: Female

DRUGS (11)
  1. ASPIRIN [Concomitant]
     Dosage: 75 MG, UNK
     Dates: start: 20101201
  2. OMEPRAZOLE [Concomitant]
     Dosage: 40 MG, UNK
     Route: 048
  3. ACETAMINOPHEN [Concomitant]
     Dosage: 1 MG, UNK
  4. POTASSIUM CHLORIDE [Concomitant]
     Route: 048
  5. ALBUTEROL [Concomitant]
  6. GALANTAMINE HYDROBROMIDE [Suspect]
     Indication: DEMENTIA ALZHEIMER'S TYPE
     Dosage: 24 MG, UNK
     Route: 048
     Dates: start: 20100218, end: 20100220
  7. LISINOPRIL [Concomitant]
     Dosage: 10 MG, UNK
  8. ALENDRONATE SODIUM [Concomitant]
     Dosage: 70 MG, UNK
     Route: 048
  9. FUROSEMIDE [Concomitant]
     Dosage: 40 MG, UNK
  10. CALCICHEW [Concomitant]
     Dosage: 1 DF, UNK
  11. SYMBICORT [Concomitant]

REACTIONS (2)
  - PEPTIC ULCER [None]
  - GASTROINTESTINAL HAEMORRHAGE [None]
